FAERS Safety Report 4625919-8 (Version None)
Quarter: 2005Q1

REPORT INFORMATION
  Report Type: 
  Country: None (occurrence: None)
  Receive Date: 20050330
  Receipt Date: 20050324
  Transmission Date: 20050727
  Serious: Yes (Other)
  Sender: FDA-Public Use
  Company Number: 002-050324

PATIENT
  Age: 58 Year
  Sex: Male

DRUGS (2)
  1. CHLORHEXIDINE GLUCONATE [Suspect]
     Indication: GINGIVAL RECESSION
     Dosage: 15 ML, HS, ORAL
     Route: 048
     Dates: start: 20050313, end: 20050314
  2. CHLORHEXIDINE GLUCONATE [Suspect]
     Indication: GINGIVAL RECESSION
     Dosage: 15 ML, HS, ORAL
     Route: 048
     Dates: start: 20050316

REACTIONS (2)
  - DYSGEUSIA [None]
  - LIP DRY [None]
